FAERS Safety Report 10800736 (Version 2)
Quarter: 2015Q1

REPORT INFORMATION
  Report Type: Spontaneous
  Country: None (occurrence: US)
  Receive Date: 20150216
  Receipt Date: 20150216
  Transmission Date: 20150721
  Serious: No
  Sender: FDA-Public Use
  Company Number: US-ALLERGAN-1423920US

PATIENT
  Sex: Female

DRUGS (2)
  1. RESTASIS [Suspect]
     Active Substance: CYCLOSPORINE
     Indication: DRY EYE
     Dosage: 2 GTT, BID
     Route: 047
     Dates: start: 201409
  2. RESTASIS [Suspect]
     Active Substance: CYCLOSPORINE
     Dosage: 2 GTT, BID
     Route: 047

REACTIONS (5)
  - Eye irritation [Unknown]
  - Foreign body sensation in eyes [Not Recovered/Not Resolved]
  - Eye pain [Unknown]
  - Eye discharge [Unknown]
  - Nasopharyngitis [Not Recovered/Not Resolved]
